FAERS Safety Report 13507202 (Version 1)
Quarter: 2017Q2

REPORT INFORMATION
  Report Type: Spontaneous
  Country: US (occurrence: US)
  Receive Date: 20170502
  Receipt Date: 20170502
  Transmission Date: 20170830
  Serious: Yes (Other)
  Sender: FDA-Public Use
  Company Number: None

PATIENT
  Age: 76 Year
  Sex: Male
  Weight: 95.4 kg

DRUGS (8)
  1. PREDNISONE. [Concomitant]
     Active Substance: PREDNISONE
  2. ZEGERID [Concomitant]
     Active Substance: OMEPRAZOLE\SODIUM BICARBONATE
  3. THEOPHYLINE [Concomitant]
     Active Substance: THEOPHYLLINE ANHYDROUS
  4. MAGNESIUM [Concomitant]
     Active Substance: MAGNESIUM
  5. EQUATE ALLERGY [Concomitant]
  6. BREO ELLIPTA [Suspect]
     Active Substance: FLUTICASONE FUROATE\VILANTEROL TRIFENATATE
     Indication: CHRONIC OBSTRUCTIVE PULMONARY DISEASE
     Dosage: ?          OTHER STRENGTH:25MCG;QUANTITY:30 CAPSULE(S);?
     Route: 055
     Dates: start: 20170427, end: 20170430
  7. ALBUTERAL [Concomitant]
     Active Substance: ALBUTEROL
  8. AMILUPINE [Concomitant]

REACTIONS (5)
  - Asthenia [None]
  - Hypersomnia [None]
  - Stomatitis [None]
  - Fatigue [None]
  - Chest pain [None]

NARRATIVE: CASE EVENT DATE: 20170429
